FAERS Safety Report 9878437 (Version 2)
Quarter: 2014Q1

REPORT INFORMATION
  Report Type: Spontaneous
  Country: US (occurrence: US)
  Receive Date: 20140206
  Receipt Date: 20140206
  Transmission Date: 20141002
  Serious: No
  Sender: FDA-Public Use
  Company Number: US-ALLERGAN-1312098US

PATIENT
  Sex: Male

DRUGS (1)
  1. BOTOX [Suspect]
     Indication: HYPERTONIC BLADDER
     Dosage: UNK, SINGLE
     Route: 030
     Dates: start: 20130717, end: 20130717

REACTIONS (1)
  - Urinary retention [Unknown]
